FAERS Safety Report 20863385 (Version 1)
Quarter: 2022Q2

REPORT INFORMATION
  Report Type: Spontaneous
  Country: DE (occurrence: DE)
  Receive Date: 20220523
  Receipt Date: 20220523
  Transmission Date: 20220720
  Serious: Yes (Other)
  Sender: FDA-Public Use
  Company Number: DE-BRISTOL-MYERS SQUIBB COMPANY-2022-038941

PATIENT
  Age: 51 Year
  Sex: Female

DRUGS (1)
  1. ZEPOSIA [Suspect]
     Active Substance: OZANIMOD HYDROCHLORIDE
     Indication: Relapsing-remitting multiple sclerosis
     Dosage: DOSE : 0.92 MG;     FREQ : EVERY SECOND DAY
     Route: 065
     Dates: start: 20211025

REACTIONS (2)
  - Paraparesis [Unknown]
  - Off label use [Unknown]

NARRATIVE: CASE EVENT DATE: 20220201
